FAERS Safety Report 21237318 (Version 11)
Quarter: 2025Q3

REPORT INFORMATION
  Report Type: Spontaneous
  Country: US (occurrence: US)
  Receive Date: 20220822
  Receipt Date: 20250919
  Transmission Date: 20251021
  Serious: No
  Sender: PFIZER
  Company Number: US-PFIZER INC-202101488194

PATIENT
  Age: 70 Year
  Sex: Female

DRUGS (20)
  1. XELJANZ [Suspect]
     Active Substance: TOFACITINIB CITRATE
     Indication: Psoriasis
     Dosage: 5 MG, 1X/DAY (QD 30-DAY SUPPLY TD)
     Route: 048
  2. XELJANZ [Suspect]
     Active Substance: TOFACITINIB CITRATE
     Dosage: 5 MG, DAILY (ALTERNATE 5 MG DAILY THEN 10 MG THE NEXT DAY)
  3. XELJANZ [Suspect]
     Active Substance: TOFACITINIB CITRATE
     Dosage: 10 MG, DAILY (ALTERNATE 5 MG DAILY THEN 10 MG THE NEXT DAY)
     Dates: end: 202208
  4. XELJANZ [Suspect]
     Active Substance: TOFACITINIB CITRATE
     Dosage: 5 MG, 2X/DAY (5 MG TWICE DAILY ALTERNATING WITH 5 MG ONCE DAILY EVERY OTHER DAY)
  5. XELJANZ [Suspect]
     Active Substance: TOFACITINIB CITRATE
     Dosage: 5 MG, 1X/DAY (5 MG TWICE DAILY ALTERNATING WITH 5 MG ONCE DAILY EVERY OTHER DAY)
  6. XELJANZ [Suspect]
     Active Substance: TOFACITINIB CITRATE
     Dosage: 5 MG, 2X/DAY (5MG PO (PER ORAL) BID (TWICE A DAY)
     Route: 048
  7. ASPIRIN [Concomitant]
     Active Substance: ASPIRIN
  8. CHOLECALCIFEROL [Concomitant]
     Active Substance: CHOLECALCIFEROL
  9. PLAVIX [Concomitant]
     Active Substance: CLOPIDOGREL BISULFATE
  10. VITAMIN B12 [Concomitant]
     Active Substance: CYANOCOBALAMIN
  11. DULOXETINE HYDROCHLORIDE [Concomitant]
     Active Substance: DULOXETINE HYDROCHLORIDE
  12. CYMBALTA [Concomitant]
     Active Substance: DULOXETINE HYDROCHLORIDE
  13. INSULIN NOS [Concomitant]
     Active Substance: INSULIN NOS
  14. INSULIN LISPRO [Concomitant]
     Active Substance: INSULIN LISPRO
  15. LOSARTAN POTASSIUM [Concomitant]
     Active Substance: LOSARTAN POTASSIUM
  16. NITROGLYCERIN [Concomitant]
     Active Substance: NITROGLYCERIN
  17. OXYBUTYNIN [Concomitant]
     Active Substance: OXYBUTYNIN
  18. TIZANIDINE [Concomitant]
     Active Substance: TIZANIDINE
  19. HERBALS\TURMERIC [Concomitant]
     Active Substance: HERBALS\TURMERIC
  20. VITAMIN B COMPLEX [Concomitant]
     Active Substance: CYANOCOBALAMIN\DEXPANTHENOL\NIACINAMIDE\PYRIDOXINE HYDROCHLORIDE\RIBOFLAVIN 5^-PHOSPHATE SODIUM\THIA

REACTIONS (5)
  - Off label use [Unknown]
  - Urinary tract infection [Unknown]
  - Cognitive disorder [Unknown]
  - Drug hypersensitivity [Unknown]
  - Infection [Unknown]
